FAERS Safety Report 12093950 (Version 1)
Quarter: 2016Q1

REPORT INFORMATION
  Report Type: Spontaneous
  Country: None (occurrence: AU)
  Receive Date: 20160219
  Receipt Date: 20160219
  Transmission Date: 20160526
  Serious: No
  Sender: FDA-Public Use
  Company Number: AU-MERZ NORTH AMERICA, INC.-16MRZ-00121

PATIENT
  Age: 70 Year
  Sex: Female

DRUGS (1)
  1. XEOMIN [Suspect]
     Active Substance: INCOBOTULINUMTOXINA
     Indication: PRODUCT USED FOR UNKNOWN INDICATION
     Dosage: (1 IN 1 TOTAL)
     Route: 030
     Dates: start: 20150901, end: 20150901

REACTIONS (3)
  - Influenza like illness [Recovered/Resolved]
  - Disturbance in attention [Recovered/Resolved]
  - Eyelid ptosis [Recovered/Resolved]

NARRATIVE: CASE EVENT DATE: 20150907
